FAERS Safety Report 10431604 (Version 1)
Quarter: 2014Q3

REPORT INFORMATION
  Report Type: Spontaneous
  Country: US (occurrence: None)
  Receive Date: 20140903
  Receipt Date: 20140903
  Transmission Date: 20150326
  Serious: Yes (Death)
  Sender: FDA-Public Use
  Company Number: QSC-2014-0547

PATIENT
  Age: 30 Year
  Sex: Female

DRUGS (1)
  1. H.P. ACTHAR [Suspect]
     Active Substance: CORTICOTROPIN
     Indication: LUPUS NEPHRITIS
     Dosage: 80 UNITS, BIW
     Dates: start: 20140425

REACTIONS (1)
  - Adverse event [None]

NARRATIVE: CASE EVENT DATE: 20140722
